FAERS Safety Report 15947905 (Version 2)
Quarter: 2019Q2

REPORT INFORMATION
  Report Type: Spontaneous
  Country: DE (occurrence: DE)
  Receive Date: 20190211
  Receipt Date: 20190429
  Transmission Date: 20190711
  Serious: Yes (Death)
  Sender: FDA-Public Use
  Company Number: DE-ACTELION-A-NJ2019-186229

PATIENT
  Age: 68 Year
  Sex: Female

DRUGS (12)
  1. MELOXICAM. [Concomitant]
     Active Substance: MELOXICAM
  2. UPTRAVI [Suspect]
     Active Substance: SELEXIPAG
     Indication: PULMONARY ARTERIAL HYPERTENSION
     Dosage: UNK, BID
     Route: 048
     Dates: start: 20180628, end: 20180810
  3. SILDENAFIL. [Concomitant]
     Active Substance: SILDENAFIL
     Dosage: UNK
     Dates: start: 20170906
  4. THYRONAJOD [Concomitant]
     Active Substance: LEVOTHYROXINE SODIUM\POTASSIUM IODIDE
  5. METOPROLOL. [Concomitant]
     Active Substance: METOPROLOL
     Dosage: UNK
     Dates: start: 2017
  6. PREDNISOLONE. [Concomitant]
     Active Substance: PREDNISOLONE
  7. VENTAVIS [Suspect]
     Active Substance: ILOPROST
     Indication: PULMONARY ARTERIAL HYPERTENSION
     Dosage: UNK
     Route: 055
     Dates: start: 20181011
  8. MAGNESIUM [Concomitant]
     Active Substance: MAGNESIUM
  9. FERRIC MALTOL. [Concomitant]
     Active Substance: FERRIC MALTOL
  10. PALLADON [Concomitant]
     Active Substance: HYDROMORPHONE
  11. QUENSYL [Concomitant]
     Active Substance: HYDROXYCHLOROQUINE
  12. FUROSEMIDE. [Concomitant]
     Active Substance: FUROSEMIDE
     Dosage: UNK
     Dates: start: 20180716

REACTIONS (1)
  - Death [Fatal]

NARRATIVE: CASE EVENT DATE: 20181023
